FAERS Safety Report 6213551-4 (Version None)
Quarter: 2009Q2

REPORT INFORMATION
  Report Type: 
  Country: None (occurrence: None)
  Receive Date: 20090603
  Receipt Date: 20090527
  Transmission Date: 20091009
  Serious: Yes (Other)
  Sender: FDA-Public Use
  Company Number: US-JNJFOC-20090600016

PATIENT
  Sex: Female
  Weight: 100.7 kg

DRUGS (2)
  1. RISPERDAL CONSTA [Suspect]
     Indication: SCHIZOPHRENIA
     Route: 030
  2. IRON [Suspect]
     Indication: ANAEMIA
     Route: 065

REACTIONS (3)
  - ANAEMIA [None]
  - TARDIVE DYSKINESIA [None]
  - WEIGHT INCREASED [None]
